FAERS Safety Report 10494355 (Version 3)
Quarter: 2014Q4

REPORT INFORMATION
  Report Type: Spontaneous
  Country: JP (occurrence: JP)
  Receive Date: 20141003
  Receipt Date: 20141006
  Transmission Date: 20150528
  Serious: Yes (Death, Life-Threatening)
  Sender: FDA-Public Use
  Company Number: JP-PFIZER INC-2014206774

PATIENT
  Age: 85 Year
  Sex: Female

DRUGS (13)
  1. FOSPHENYTOIN SODIUM. [Suspect]
     Active Substance: FOSPHENYTOIN SODIUM
     Dosage: 375 MG, DAILY
     Route: 042
     Dates: start: 20140208, end: 20140209
  2. FOSPHENYTOIN SODIUM. [Suspect]
     Active Substance: FOSPHENYTOIN SODIUM
     Dosage: 375 MG, DAILY
     Route: 042
     Dates: start: 20140225, end: 20140302
  3. FOSPHENYTOIN SODIUM. [Suspect]
     Active Substance: FOSPHENYTOIN SODIUM
     Dosage: 450 MG, DAILY
     Route: 042
     Dates: start: 20140303, end: 20140305
  4. HEPARIN [Concomitant]
     Active Substance: HEPARIN SODIUM
     Indication: PROPHYLAXIS
     Dosage: 19200 UNIT
     Route: 042
     Dates: start: 20140219, end: 20140428
  5. FOSPHENYTOIN SODIUM. [Suspect]
     Active Substance: FOSPHENYTOIN SODIUM
     Dosage: 300 MG, DAILY
     Route: 042
     Dates: start: 20140306, end: 20140308
  6. VANCOMYCIN [Concomitant]
     Active Substance: VANCOMYCIN
     Indication: PNEUMONIA
     Dosage: 1G. UNK
     Route: 042
     Dates: start: 20140402, end: 20140408
  7. DIAZEPAM. [Concomitant]
     Active Substance: DIAZEPAM
  8. FOSPHENYTOIN SODIUM. [Suspect]
     Active Substance: FOSPHENYTOIN SODIUM
     Indication: EPILEPSY
     Dosage: 1125 MG, DAILY
     Route: 042
     Dates: start: 20140207, end: 20140207
  9. FOSPHENYTOIN SODIUM. [Suspect]
     Active Substance: FOSPHENYTOIN SODIUM
     Dosage: 300 MG, DAILY
     Route: 042
     Dates: start: 20140210, end: 20140210
  10. FOSPHENYTOIN SODIUM. [Suspect]
     Active Substance: FOSPHENYTOIN SODIUM
     Dosage: 300 MG, DAILY
     Route: 042
     Dates: start: 20140215, end: 20140224
  11. FOSPHENYTOIN SODIUM. [Suspect]
     Active Substance: FOSPHENYTOIN SODIUM
     Dosage: 450 MG, DAILY
     Route: 042
     Dates: start: 20140312, end: 20140407
  12. HEPARIN [Concomitant]
     Active Substance: HEPARIN SODIUM
     Indication: THROMBOTIC CEREBRAL INFARCTION
  13. ZOSYN [Concomitant]
     Active Substance: PIPERACILLIN SODIUM\TAZOBACTAM SODIUM
     Indication: PNEUMONIA
     Dosage: 9 G, UNK
     Route: 042
     Dates: start: 20140402, end: 20140408

REACTIONS (3)
  - Cerebral infarction [Fatal]
  - Pneumonia [Fatal]
  - Drug reaction with eosinophilia and systemic symptoms [Fatal]

NARRATIVE: CASE EVENT DATE: 20140215
